FAERS Safety Report 4602244-2 (Version None)
Quarter: 2005Q1

REPORT INFORMATION
  Report Type: 
  Country: None (occurrence: None)
  Receive Date: 20050201
  Receipt Date: 20031211
  Transmission Date: 20050727
  Serious: Yes (Other)
  Sender: FDA-Public Use
  Company Number: 200330153BWH

PATIENT
  Age: 23 Year
  Sex: Female
  Weight: 72.5755 kg

DRUGS (4)
  1. AVELOX [Suspect]
     Indication: ARTHROPOD BITE
     Dosage: 400 MG, QD, ORAL; 400 MG, ONCE, ORAL
     Route: 048
     Dates: start: 20031129, end: 20031205
  2. AVELOX [Suspect]
     Indication: SKIN INFECTION
     Dosage: 400 MG, QD, ORAL; 400 MG, ONCE, ORAL
     Route: 048
     Dates: start: 20031129, end: 20031205
  3. AVELOX [Suspect]
     Indication: ARTHROPOD BITE
     Dosage: 400 MG, QD, ORAL; 400 MG, ONCE, ORAL
     Route: 048
     Dates: start: 20031209
  4. AVELOX [Suspect]
     Indication: SKIN INFECTION
     Dosage: 400 MG, QD, ORAL; 400 MG, ONCE, ORAL
     Route: 048
     Dates: start: 20031209

REACTIONS (4)
  - ANAPHYLACTIC REACTION [None]
  - PRURITUS [None]
  - SWOLLEN TONGUE [None]
  - URTICARIA [None]
